FAERS Safety Report 4970364-9 (Version None)
Quarter: 2006Q2

REPORT INFORMATION
  Report Type: 
  Country: None (occurrence: None)
  Receive Date: 20060406
  Receipt Date: 20060323
  Transmission Date: 20061013
  Serious: Yes (Hospitalization)
  Sender: FDA-Public Use
  Company Number: B0418726A

PATIENT
  Age: 51 Year
  Sex: Male

DRUGS (13)
  1. PAXIL [Suspect]
     Dosage: 20 MG
  2. LITHIUM CARBONATE [Suspect]
     Dates: start: 20040101, end: 20040625
  3. OLANZAPINE [Concomitant]
  4. LORMETAZEPAM [Concomitant]
  5. HALOPERIDOL [Concomitant]
  6. AMISULPRIDE [Concomitant]
  7. RISPERIDONE [Suspect]
  8. BIPERIDEN (FORMULATION UNKNOWN) (BIPERIDEN) [Suspect]
     Dates: end: 20040625
  9. VENLAFAXINE HCL [Concomitant]
  10. CLORAZEPATE MONOPOTASSIUM [Concomitant]
  11. LORAZEPAM [Suspect]
  12. FLURAZEPAM (FORMULATION UNKNOWN) (FLURAZEPAM) [Suspect]
     Dosage: 30 MG
     Dates: end: 20040625
  13. METHOTRIMEPRAZINE (FORMULATION UNKNOWN) (METHOTRIMEPRAZINE) [Suspect]
     Dosage: 24 MG

REACTIONS (17)
  - ABNORMAL BEHAVIOUR [None]
  - AMNESIA [None]
  - ANXIETY [None]
  - CONFUSIONAL STATE [None]
  - CONSCIOUSNESS FLUCTUATING [None]
  - DELIRIUM [None]
  - DEPRESSED LEVEL OF CONSCIOUSNESS [None]
  - DEPRESSION [None]
  - DISSOCIATION [None]
  - DYSPHAGIA [None]
  - HYPERTONIA [None]
  - INSOMNIA [None]
  - IRRITABILITY [None]
  - MALAISE [None]
  - MUSCLE RIGIDITY [None]
  - PARKINSONISM [None]
  - RESTLESSNESS [None]
